FAERS Safety Report 4922669-5 (Version None)
Quarter: 2006Q1

REPORT INFORMATION
  Report Type: 
  Country: None (occurrence: None)
  Receive Date: 20060224
  Receipt Date: 20060216
  Transmission Date: 20060701
  Serious: Yes (Other)
  Sender: FDA-Public Use
  Company Number: JP-ABBOTT-06P-087-0325314-00

PATIENT
  Age: 66 Year
  Sex: Male

DRUGS (1)
  1. LIPIDIL [Suspect]
     Indication: HYPERLIPIDAEMIA
     Route: 048
     Dates: start: 20051104, end: 20051230

REACTIONS (2)
  - JAUNDICE [None]
  - LIVER DISORDER [None]
